FAERS Safety Report 17977594 (Version 4)
Quarter: 2022Q2

REPORT INFORMATION
  Report Type: Report from Study
  Country: US (occurrence: US)
  Receive Date: 20200703
  Receipt Date: 20220411
  Transmission Date: 20220720
  Serious: No
  Sender: FDA-Public Use
  Company Number: US-ACADIA PHARMACEUTICALS INC.-ACA-2020-PIM-001925

PATIENT
  Age: 79 Year
  Sex: Male

DRUGS (12)
  1. NUPLAZID [Suspect]
     Active Substance: PIMAVANSERIN TARTRATE
     Indication: Parkinson^s disease
     Dosage: 34 MILLIGRAM, QD
     Route: 048
     Dates: start: 20200403
  2. AMLODIPINE [Concomitant]
     Active Substance: AMLODIPINE BESYLATE
     Indication: Product used for unknown indication
  3. BASAGLAR [Concomitant]
     Active Substance: INSULIN GLARGINE
     Indication: Product used for unknown indication
  4. CLOPIDOGREL [Concomitant]
     Active Substance: CLOPIDOGREL BISULFATE
     Indication: Product used for unknown indication
  5. FENOFIBRATE [Concomitant]
     Active Substance: FENOFIBRATE
     Indication: Product used for unknown indication
  6. ROSUVASTATIN [Concomitant]
     Active Substance: ROSUVASTATIN
     Indication: Product used for unknown indication
  7. TESTIM [Concomitant]
     Active Substance: TESTOSTERONE
     Indication: Product used for unknown indication
  8. VICTOZA [Concomitant]
     Active Substance: LIRAGLUTIDE
     Indication: Product used for unknown indication
  9. LOSARTAN POTASSIUM [Concomitant]
     Active Substance: LOSARTAN POTASSIUM
     Indication: Product used for unknown indication
  10. DOXYCYCLINE [Concomitant]
     Active Substance: DOXYCYCLINE
     Indication: Product used for unknown indication
  11. FUROSEMIDE [Concomitant]
     Active Substance: FUROSEMIDE
     Indication: Product used for unknown indication
  12. HUMALOG JUNIOR KWIKPEN [Concomitant]
     Active Substance: INSULIN LISPRO
     Indication: Product used for unknown indication

REACTIONS (4)
  - Gastrointestinal infection [Not Recovered/Not Resolved]
  - Peripheral swelling [Unknown]
  - Oedema peripheral [Not Recovered/Not Resolved]
  - Confusional state [Not Recovered/Not Resolved]

NARRATIVE: CASE EVENT DATE: 20200601
